FAERS Safety Report 23481501 (Version 1)
Quarter: 2024Q1

REPORT INFORMATION
  Report Type: Report from Study
  Country: IT (occurrence: IT)
  Receive Date: 20240205
  Receipt Date: 20240205
  Transmission Date: 20240410
  Serious: Yes (Other)
  Sender: FDA-Public Use
  Company Number: IT-TEVA-VS-3150627

PATIENT
  Age: 62 Year
  Sex: Female
  Weight: 64 kg

DRUGS (5)
  1. VALPROATE [Suspect]
     Active Substance: VALPROIC ACID
     Indication: Seizure
     Route: 065
  2. RANITIDINE [Concomitant]
     Active Substance: RANITIDINE
     Indication: Product used for unknown indication
     Route: 065
  3. CARBAMAZEPINE [Suspect]
     Active Substance: CARBAMAZEPINE
     Indication: Seizure
     Route: 065
  4. EDOXABAN [Suspect]
     Active Substance: EDOXABAN
     Indication: Atrial fibrillation
     Route: 048
  5. PROPAFENONE [Concomitant]
     Active Substance: PROPAFENONE
     Indication: Atrial fibrillation
     Route: 065

REACTIONS (2)
  - Anticoagulation drug level decreased [Unknown]
  - Drug interaction [Unknown]
